FAERS Safety Report 14522690 (Version 4)
Quarter: 2018Q3

REPORT INFORMATION
  Report Type: Spontaneous
  Country: US (occurrence: US)
  Receive Date: 20180212
  Receipt Date: 20180828
  Transmission Date: 20181010
  Serious: Yes (Disabling, Other)
  Sender: FDA-Public Use
  Company Number: US-ACTELION-A-NJ2018-167490

PATIENT
  Age: 62 Year
  Sex: Female
  Weight: 99.77 kg

DRUGS (6)
  1. INSULIN GLARGINE [Concomitant]
     Active Substance: INSULIN GLARGINE
     Dosage: UNK
  2. METHOTREXATE. [Concomitant]
     Active Substance: METHOTREXATE
     Dosage: 2.5 MG, Q1WEEK
  3. OPSUMIT [Suspect]
     Active Substance: MACITENTAN
     Indication: PULMONARY ARTERIAL HYPERTENSION
     Dosage: 10 MG, UNK
     Route: 048
     Dates: start: 201708
  4. ALBUTEROL. [Concomitant]
     Active Substance: ALBUTEROL
     Dosage: HFA, PM
  5. ASPIRIN. [Concomitant]
     Active Substance: ASPIRIN
     Dosage: 81 MG, UNK
  6. SITAGLIPTIN METFORMIN [Concomitant]
     Active Substance: METFORMIN HYDROCHLORIDE\SITAGLIPTIN PHOSPHATE
     Dosage: 50/500

REACTIONS (6)
  - Deafness unilateral [Not Recovered/Not Resolved]
  - Nausea [Unknown]
  - Nervousness [Unknown]
  - Headache [Unknown]
  - Anxiety [Unknown]
  - Balance disorder [Unknown]

NARRATIVE: CASE EVENT DATE: 20180701
